FAERS Safety Report 19677906 (Version 1)
Quarter: 2021Q3

REPORT INFORMATION
  Report Type: Other
  Country: CN (occurrence: CN)
  Receive Date: 20210810
  Receipt Date: 20210810
  Transmission Date: 20211014
  Serious: Yes (Death, Other)
  Sender: FDA-Public Use
  Company Number: CN-ROCHE-1638232

PATIENT
  Sex: Male
  Weight: 70 kg

DRUGS (4)
  1. AVASTIN [Suspect]
     Active Substance: BEVACIZUMAB
     Indication: METASTASES TO LIVER
     Route: 041
     Dates: start: 20150910, end: 20201230
  2. RALTITREXED [Concomitant]
     Active Substance: RALTITREXED
  3. AVASTIN [Suspect]
     Active Substance: BEVACIZUMAB
     Indication: COLORECTAL CANCER
     Route: 041
     Dates: start: 20150330
  4. AVASTIN [Suspect]
     Active Substance: BEVACIZUMAB
     Indication: METASTASES TO LUNG
     Route: 041

REACTIONS (17)
  - Hepatic function abnormal [Unknown]
  - Alanine aminotransferase increased [Unknown]
  - Nasopharyngitis [Unknown]
  - Fatigue [Unknown]
  - White blood cell count decreased [Unknown]
  - Pneumonitis [Unknown]
  - Pulmonary haemorrhage [Fatal]
  - Metastases to spleen [Unknown]
  - Transaminases increased [Unknown]
  - Liver function test increased [Unknown]
  - Immunodeficiency [Unknown]
  - Pyrexia [Unknown]
  - Lung neoplasm [Unknown]
  - White blood cell count increased [Unknown]
  - Influenza [Unknown]
  - Hyperpyrexia [Unknown]
  - Aspartate aminotransferase increased [Unknown]

NARRATIVE: CASE EVENT DATE: 20150901
